FAERS Safety Report 8181354-X (Version None)
Quarter: 2012Q1

REPORT INFORMATION
  Report Type: 
  Country: None (occurrence: None)
  Receive Date: 20120302
  Receipt Date: 20120229
  Transmission Date: 20120608
  Serious: No
  Sender: FDA-Public Use
  Company Number: US-PFIZER INC-2012054512

PATIENT
  Sex: Female
  Weight: 77.098 kg

DRUGS (4)
  1. EFFEXOR [Concomitant]
     Indication: FIBROMYALGIA
     Dosage: UNK
  2. GABAPENTIN [Suspect]
     Indication: FIBROMYALGIA
     Dosage: 600 MG, 2X/DAY
     Route: 048
     Dates: start: 20110901
  3. GABAPENTIN [Suspect]
     Dosage: 600 MG, 5X/DAY
     Route: 048
  4. BACLOFEN [Concomitant]
     Indication: MUSCLE DISORDER
     Dosage: UNK

REACTIONS (3)
  - MALAISE [None]
  - IMPAIRED DRIVING ABILITY [None]
  - DRUG INEFFECTIVE [None]
